FAERS Safety Report 19677729 (Version 1)
Quarter: 2021Q3

REPORT INFORMATION
  Report Type: Spontaneous
  Country: US (occurrence: US)
  Receive Date: 20210810
  Receipt Date: 20210810
  Transmission Date: 20211014
  Serious: No
  Sender: FDA-Public Use
  Company Number: US-LEADINGPHARMA-US-2021LEASPO00244

PATIENT
  Age: 85 Year

DRUGS (5)
  1. FUROSEMIDE TABLETS USP [Suspect]
     Active Substance: FUROSEMIDE
     Indication: PERIPHERAL SWELLING
     Route: 065
  2. ENZALUTAMIDE [Concomitant]
     Active Substance: ENZALUTAMIDE
     Indication: PROSTATE CANCER
     Route: 048
     Dates: start: 20201216
  3. ENZALUTAMIDE [Concomitant]
     Active Substance: ENZALUTAMIDE
     Route: 048
  4. ENZALUTAMIDE [Concomitant]
     Active Substance: ENZALUTAMIDE
     Route: 048
  5. ENZALUTAMIDE [Concomitant]
     Active Substance: ENZALUTAMIDE
     Route: 048

REACTIONS (3)
  - Pollakiuria [Unknown]
  - Muscle spasms [Unknown]
  - Inappropriate schedule of product administration [Unknown]
